FAERS Safety Report 7216653-9 (Version None)
Quarter: 2011Q1

REPORT INFORMATION
  Report Type: 
  Country: None (occurrence: None)
  Receive Date: 20110110
  Receipt Date: 20101230
  Transmission Date: 20110831
  Serious: No
  Sender: FDA-Public Use
  Company Number: US-BIOGENIDEC-2011BI000120

PATIENT
  Sex: Female

DRUGS (1)
  1. TYSABRI [Suspect]
     Indication: MULTIPLE SCLEROSIS
     Route: 042
     Dates: start: 20090521

REACTIONS (7)
  - FATIGUE [None]
  - ASTHENIA [None]
  - HEADACHE [None]
  - MIGRAINE [None]
  - DRUG INEFFECTIVE [None]
  - BALANCE DISORDER [None]
  - MUSCLE SPASMS [None]
